FAERS Safety Report 4340939-9 (Version None)
Quarter: 2004Q2

REPORT INFORMATION
  Report Type: 
  Country: None (occurrence: None)
  Receive Date: 20040419
  Receipt Date: 20040407
  Transmission Date: 20050107
  Serious: Yes (Life-Threatening, Hospitalization)
  Sender: FDA-Public Use
  Company Number: JP-BRISTOL-MYERS SQUIBB COMPANY-12553707

PATIENT
  Age: 40 Year
  Sex: Female

DRUGS (8)
  1. TRAZODONE HCL [Suspect]
     Route: 048
  2. LITHIUM CARBONATE [Suspect]
     Indication: BIPOLAR I DISORDER
     Dosage: MAINTENANCE THERAPY OF 400 MG DAILY
     Route: 048
  3. LITHIUM CARBONATE [Suspect]
     Indication: HALLUCINATION
     Dosage: MAINTENANCE THERAPY OF 400 MG DAILY
     Route: 048
  4. LITHIUM CARBONATE [Suspect]
     Indication: DELUSION
     Dosage: MAINTENANCE THERAPY OF 400 MG DAILY
     Route: 048
  5. ALPRAZOLAM [Suspect]
     Route: 048
  6. CLOMIPRAMINE HCL [Suspect]
     Route: 048
  7. HYDROXYZINE HCL [Suspect]
     Route: 048
  8. MILNACIPRAN [Suspect]
     Route: 048

REACTIONS (3)
  - DRUG TOXICITY [None]
  - HAEMODIALYSIS [None]
  - SUICIDE ATTEMPT [None]
